FAERS Safety Report 7037401-1 (Version None)
Quarter: 2010Q4

REPORT INFORMATION
  Report Type: 
  Country: None (occurrence: None)
  Receive Date: 20101011
  Receipt Date: 20101001
  Transmission Date: 20110411
  Serious: Yes (Other)
  Sender: FDA-Public Use
  Company Number: JP-PFIZER INC-2010122434

PATIENT
  Age: 71 Year
  Sex: Male

DRUGS (1)
  1. AMLODIPINE BESYLATE [Suspect]
     Dosage: 5 MG, DAILY
     Route: 048

REACTIONS (1)
  - LOSS OF CONSCIOUSNESS [None]
